FAERS Safety Report 4428901-9 (Version None)
Quarter: 2004Q3

REPORT INFORMATION
  Report Type: 
  Country: None (occurrence: None)
  Receive Date: 20040818
  Receipt Date: 20040430
  Transmission Date: 20050211
  Serious: Yes (Life-Threatening, Other)
  Sender: FDA-Public Use
  Company Number: FR-BRISTOL-MYERS SQUIBB COMPANY-12596417

PATIENT
  Age: 43 Year
  Sex: Female

DRUGS (5)
  1. KENACORT [Suspect]
     Indication: PAIN
     Dosage: PERIDURAL ROUTE
     Route: 037
     Dates: start: 20040430, end: 20040430
  2. NAROPIN [Suspect]
     Indication: PAIN
     Route: 033
     Dates: start: 20040430, end: 20040430
  3. KETAMINE HCL [Suspect]
     Indication: PAIN
     Route: 033
     Dates: start: 20040430, end: 20040430
  4. TENORDATE [Concomitant]
     Dates: end: 20040430
  5. COVERSYL [Concomitant]
     Dates: end: 20040430

REACTIONS (2)
  - CARDIAC ARREST [None]
  - MEDICATION ERROR [None]
